FAERS Safety Report 8762025 (Version 2)
Quarter: 2012Q4

REPORT INFORMATION
  Report Type: 
  Country: US (occurrence: US)
  Receive Date: 20120830
  Receipt Date: 20120905
  Transmission Date: 20130627
  Serious: Yes (Other)
  Sender: FDA-Public Use
  Company Number: US-PFIZER INC-2012211883

PATIENT
  Age: 45 Year
  Sex: Female
  Weight: 95.69 kg

DRUGS (2)
  1. LYRICA [Suspect]
     Indication: NERVE INJURY
     Dosage: 75 mg, 2x/day
     Route: 048
     Dates: start: 201206
  2. LYRICA [Suspect]
     Dosage: 75 mg, daily
     Route: 048
     Dates: start: 201207, end: 20120826

REACTIONS (9)
  - Blood pressure increased [Not Recovered/Not Resolved]
  - Swelling face [Not Recovered/Not Resolved]
  - Headache [Not Recovered/Not Resolved]
  - Somnolence [Not Recovered/Not Resolved]
  - Dizziness [Recovered/Resolved]
  - Vision blurred [Not Recovered/Not Resolved]
  - Tremor [Recovered/Resolved]
  - Weight increased [Unknown]
  - Fatigue [Unknown]
